FAERS Safety Report 7426946-8 (Version None)
Quarter: 2011Q2

REPORT INFORMATION
  Report Type: 
  Country: None (occurrence: None)
  Receive Date: 20110420
  Receipt Date: 20110415
  Transmission Date: 20111010
  Serious: Yes (Hospitalization)
  Sender: FDA-Public Use
  Company Number: CN-ABBOTT-11P-035-0717348-00

PATIENT
  Sex: Male

DRUGS (2)
  1. HYTRIN [Suspect]
     Dosage: 0.25 - 0.5 MG ONCE DAILY
     Route: 048
     Dates: start: 20110401
  2. HYTRIN [Suspect]
     Indication: HYPERTENSION
     Route: 048

REACTIONS (4)
  - NAUSEA [None]
  - BLOOD PRESSURE DECREASED [None]
  - CARDIAC FAILURE [None]
  - DIZZINESS [None]
